FAERS Safety Report 7351187-2 (Version None)
Quarter: 2011Q1

REPORT INFORMATION
  Report Type: 
  Country: None (occurrence: None)
  Receive Date: 20110314
  Receipt Date: 20110307
  Transmission Date: 20110831
  Serious: Yes (Other)
  Sender: FDA-Public Use
  Company Number: US-ALLERGAN-1103193US

PATIENT
  Age: 79 Year
  Sex: Female

DRUGS (3)
  1. ALPHAGAN P [Suspect]
     Indication: PRODUCT USED FOR UNKNOWN INDICATION
  2. LUMIGAN [Suspect]
     Indication: PRODUCT USED FOR UNKNOWN INDICATION
  3. AZOPT [Suspect]
     Indication: PRODUCT USED FOR UNKNOWN INDICATION
     Dosage: 1 GTT, TID
     Route: 047

REACTIONS (1)
  - BRADYCARDIA [None]
